FAERS Safety Report 9191042 (Version 2)
Quarter: 2013Q1

REPORT INFORMATION
  Report Type: Report from Study
  Country: CA (occurrence: CA)
  Receive Date: 20130326
  Receipt Date: 20130328
  Transmission Date: 20140127
  Serious: Yes (Other)
  Sender: FDA-Public Use
  Company Number: CA-ROCHE-1204543

PATIENT
  Age: 50 Year
  Sex: Female

DRUGS (1)
  1. HERCEPTIN [Suspect]
     Indication: BREAST CANCER
     Route: 065

REACTIONS (1)
  - Ejection fraction decreased [Unknown]
